FAERS Safety Report 7900747-6 (Version None)
Quarter: 2011Q4

REPORT INFORMATION
  Report Type: 
  Country: None (occurrence: None)
  Receive Date: 20111108
  Receipt Date: 20111031
  Transmission Date: 20120403
  Serious: Yes (Life-Threatening, Hospitalization, Disabling)
  Sender: FDA-Public Use
  Company Number: DE-SANOFI-AVENTIS-2011SA042799

PATIENT
  Age: 68 Year
  Sex: Female
  Weight: 56 kg

DRUGS (6)
  1. LEVOTHYROXINE SODIUM [Concomitant]
     Route: 048
     Dates: start: 20110728
  2. DOCETAXEL [Suspect]
     Route: 042
     Dates: start: 20110630, end: 20110630
  3. CAPECITABINE [Suspect]
     Indication: BREAST CANCER
     Route: 048
     Dates: start: 20110609, end: 20110704
  4. LEVOTHYROXINE SODIUM [Concomitant]
     Route: 048
     Dates: start: 20050101, end: 20110728
  5. DOCETAXEL [Suspect]
     Indication: BREAST CANCER
     Route: 042
     Dates: start: 20110609, end: 20110609
  6. BISOPROLOL [Concomitant]
     Indication: HYPERTENSION
     Route: 048
     Dates: start: 19910101

REACTIONS (9)
  - WEIGHT DECREASED [None]
  - ESCHERICHIA URINARY TRACT INFECTION [None]
  - ATRIAL FIBRILLATION [None]
  - URINARY TRACT INFECTION BACTERIAL [None]
  - RENAL FAILURE CHRONIC [None]
  - PANCREATIC ATROPHY [None]
  - NEUTROPENIA [None]
  - ENTEROCOLITIS INFECTIOUS [None]
  - TACHYCARDIA PAROXYSMAL [None]
